FAERS Safety Report 7732350-5 (Version None)
Quarter: 2011Q3

REPORT INFORMATION
  Report Type: 
  Country: None (occurrence: None)
  Receive Date: 20110906
  Receipt Date: 20110902
  Transmission Date: 20111222
  Serious: Yes (Other)
  Sender: FDA-Public Use
  Company Number: BR-PFIZER INC-2011205573

PATIENT
  Age: 61 Year
  Sex: Male
  Weight: 90 kg

DRUGS (1)
  1. DOSTINEX [Suspect]
     Indication: BLOOD PROLACTIN INCREASED
     Dosage: UNK, 1X/WEEK
     Route: 048
     Dates: start: 20080101

REACTIONS (4)
  - HYPERTENSION [None]
  - INFLUENZA LIKE ILLNESS [None]
  - NAUSEA [None]
  - ABDOMINAL PAIN [None]
